FAERS Safety Report 17764153 (Version 1)
Quarter: 2020Q2

REPORT INFORMATION
  Report Type: Spontaneous
  Country: DE (occurrence: DE)
  Receive Date: 20200511
  Receipt Date: 20200511
  Transmission Date: 20200714
  Serious: Yes (Hospitalization)
  Sender: FDA-Public Use
  Company Number: DE-PFIZER INC-2020184357

PATIENT
  Age: 14 Year
  Sex: Female
  Weight: 52 kg

DRUGS (2)
  1. ASUMATE [Concomitant]
     Active Substance: ETHINYL ESTRADIOL\LEVONORGESTREL
     Indication: ORAL CONTRACEPTION
     Dosage: 30 MG
     Route: 048
  2. RAMIPRIL. [Suspect]
     Active Substance: RAMIPRIL
     Dosage: 3 DF, TOTAL (DAILY DOSE: 3 DF DOSAGE FORM EVERY TOTAL)
     Route: 048
     Dates: start: 2018

REACTIONS (5)
  - Product administration error [Unknown]
  - Prescription drug used without a prescription [Unknown]
  - Tetany [Recovered/Resolved]
  - Hyperventilation [Recovered/Resolved]
  - Malaise [Recovered/Resolved]

NARRATIVE: CASE EVENT DATE: 2018
